FAERS Safety Report 4380114-5 (Version None)
Quarter: 2004Q2

REPORT INFORMATION
  Report Type: 
  Country: None (occurrence: None)
  Receive Date: 20040614
  Receipt Date: 20040304
  Transmission Date: 20050107
  Serious: No
  Sender: FDA-Public Use
  Company Number: M04-341-059

PATIENT
  Age: 57 Year
  Sex: Male
  Weight: 109 kg

DRUGS (3)
  1. VELCADE [Suspect]
     Indication: MULTIPLE MYELOMA
     Dosage: 3 MG, INTRAVENOUS BOLUS
     Route: 040
     Dates: start: 20040223
  2. ARANESP [Concomitant]
  3. ZOMETA [Concomitant]

REACTIONS (3)
  - CHILLS [None]
  - PYREXIA [None]
  - STOMATITIS [None]
